FAERS Safety Report 4543163-X (Version None)
Quarter: 2004Q4

REPORT INFORMATION
  Report Type: 
  Country: None (occurrence: None)
  Receive Date: 20041229
  Receipt Date: 20041216
  Transmission Date: 20050328
  Serious: Yes (Hospitalization, Disabling)
  Sender: FDA-Public Use
  Company Number: 2004117592

PATIENT
  Age: 60 Year
  Sex: Female
  Weight: 32.659 kg

DRUGS (3)
  1. CELEBREX [Suspect]
     Indication: RHEUMATOID ARTHRITIS
     Dosage: 200 MG (100 MG, 100 MG TWICE DAILY), ORAL
     Route: 048
     Dates: start: 20040101, end: 20040801
  2. DIHYDROCODEINE (DIHYDROCODEINE) [Concomitant]
  3. LANSOPRAZOLE [Concomitant]

REACTIONS (4)
  - ACUTE PULMONARY OEDEMA [None]
  - AORTIC VALVE INCOMPETENCE [None]
  - LEFT VENTRICULAR FAILURE [None]
  - PULMONARY VALVE INCOMPETENCE [None]
